FAERS Safety Report 20824645 (Version 6)
Quarter: 2022Q4

REPORT INFORMATION
  Report Type: Report from Study
  Country: CO (occurrence: CO)
  Receive Date: 20220513
  Receipt Date: 20221115
  Transmission Date: 20230113
  Serious: Yes (Death, Life-Threatening, Hospitalization, Other)
  Sender: FDA-Public Use
  Company Number: CO-BRISTOL-MYERS SQUIBB COMPANY-2022-037817

PATIENT
  Age: 45 Year
  Sex: Female
  Weight: 63 kg

DRUGS (4)
  1. OPDIVO [Suspect]
     Active Substance: NIVOLUMAB
     Indication: Malignant melanoma
     Dosage: ENDOVENOUS
     Route: 042
     Dates: start: 20201207
  2. OPDIVO [Suspect]
     Active Substance: NIVOLUMAB
     Route: 058
     Dates: start: 20220503
  3. MIDAZOLAM [Concomitant]
     Active Substance: MIDAZOLAM
     Indication: Product used for unknown indication
     Route: 065
  4. MORPHINE [Concomitant]
     Active Substance: MORPHINE
     Indication: Product used for unknown indication
     Route: 065

REACTIONS (11)
  - Malignant neoplasm progression [Fatal]
  - Somnolence [Unknown]
  - Immobile [Recovering/Resolving]
  - Seizure [Unknown]
  - Mobility decreased [Unknown]
  - General physical health deterioration [Not Recovered/Not Resolved]
  - Eating disorder [Unknown]
  - Intentional product use issue [Unknown]
  - Nausea [Recovering/Resolving]
  - Vomiting [Recovering/Resolving]
  - Asthenia [Recovering/Resolving]

NARRATIVE: CASE EVENT DATE: 20201207
